FAERS Safety Report 8796233 (Version 3)
Quarter: 2019Q4

REPORT INFORMATION
  Report Type: Spontaneous
  Country: DE (occurrence: DE)
  Receive Date: 20120920
  Receipt Date: 20191220
  Transmission Date: 20200122
  Serious: Yes (Congenital Anomaly, Other)
  Sender: FDA-Public Use
  Company Number: DE-MYLANLABS-2012S1018502

PATIENT
  Age: 9 Month
  Sex: Female
  Weight: 2.95 kg

DRUGS (15)
  1. VIMPAT [Suspect]
     Active Substance: LACOSAMIDE
     Dosage: 200 MILLIGRAM, QD
     Route: 064
     Dates: start: 2011, end: 2011
  2. LAMOTRIGINE. [Suspect]
     Active Substance: LAMOTRIGINE
     Dosage: 275 MILLIGRAM, QD,GESTATIONAL WEEK: 12-13
     Route: 064
     Dates: start: 2011, end: 2011
  3. VIMPAT [Suspect]
     Active Substance: LACOSAMIDE
     Indication: EPILEPSY
     Dosage: 250 MILLIGRAM, QD,,GESTATIONAL WEEK: 10-11
     Route: 064
     Dates: start: 2011, end: 2011
  4. LAMOTRIGINE. [Suspect]
     Active Substance: LAMOTRIGINE
     Dosage: UNK
     Route: 064
     Dates: start: 2011, end: 20111202
  5. VIMPAT [Suspect]
     Active Substance: LACOSAMIDE
     Dosage: 100 MILLIGRAM, QD,GESTATIONAL WEEK: 13-14
     Route: 064
     Dates: start: 2011, end: 2011
  6. LAMOTRIGINE. [Suspect]
     Active Substance: LAMOTRIGINE
     Dosage: 300 MILLIGRAM, QD
     Route: 064
     Dates: start: 2011, end: 2011
  7. VIMPAT [Suspect]
     Active Substance: LACOSAMIDE
     Dosage: 250 MG/D GW 10-11: 250MG/D; GW 11-12: 200MG/D; GW 12-13:150MG/D; GW 13-14:100MG/D;GW 14-15:50M
     Route: 064
     Dates: start: 2011, end: 20111202
  8. VIMPAT [Suspect]
     Active Substance: LACOSAMIDE
     Dosage: 250 MILLIGRAM, QD
     Route: 064
     Dates: start: 201103, end: 2011
  9. ZEBINIX [Concomitant]
     Active Substance: ESLICARBAZEPINE ACETATE
     Indication: EPILEPSY
     Dosage: 200 MILLIGRAM, QD, 0-4.5 GESTATIONAL WEEK
     Route: 064
     Dates: start: 201103, end: 20110323
  10. LAMOTRIGINE. [Suspect]
     Active Substance: LAMOTRIGINE
     Indication: EPILEPSY
     Dosage: 225 MILLIGRAM, QD,GESTATIONAL WEEK: 10-11
     Route: 064
     Dates: start: 2011, end: 2011
  11. LAMOTRIGINE. [Suspect]
     Active Substance: LAMOTRIGINE
     Dosage: 250 MILLIGRAM, QD
     Route: 064
     Dates: start: 2011, end: 2011
  12. VIMPAT [Suspect]
     Active Substance: LACOSAMIDE
     Dosage: 150 MILLIGRAM, QD,, GW-12-13 WEEK
     Route: 064
     Dates: start: 2011, end: 2011
  13. FOLIC ACID. [Concomitant]
     Active Substance: FOLIC ACID
     Indication: PROPHYLAXIS OF NEURAL TUBE DEFECT
     Dosage: 0.8 MILLIGRAM, QD(0.4 MG,BID)
     Route: 064
     Dates: start: 20110418, end: 20111202
  14. LAMOTRIGINE. [Suspect]
     Active Substance: LAMOTRIGINE
     Dosage: 300 MILLIGRAM, QD
     Route: 064
     Dates: start: 201103, end: 2011
  15. VIMPAT [Suspect]
     Active Substance: LACOSAMIDE
     Dosage: 50 MILLIGRAM, QD,GESTATIONAL WEEK: 14-15
     Route: 064
     Dates: start: 2011, end: 2011

REACTIONS (4)
  - Atrial septal defect [Recovered/Resolved]
  - Small for dates baby [Unknown]
  - Foetal exposure during pregnancy [Recovered/Resolved]
  - Directional Doppler flow tests abnormal [Recovered/Resolved]

NARRATIVE: CASE EVENT DATE: 201103
